FAERS Safety Report 8976840 (Version 3)
Quarter: 2013Q3

REPORT INFORMATION
  Report Type: Spontaneous
  Country: US (occurrence: US)
  Receive Date: 20121220
  Receipt Date: 20130718
  Transmission Date: 20140515
  Serious: Yes (Hospitalization)
  Sender: FDA-Public Use
  Company Number: US-TARO-2012P1068187

PATIENT
  Age: 31 Year
  Sex: Female
  Weight: 83.01 kg

DRUGS (4)
  1. ADAPALENE + BENZYL PEROXIDE GEL 0.1%/2.5% [Suspect]
     Indication: ACNE
     Route: 061
     Dates: start: 20121108
  2. VITAMIN B12 [Concomitant]
  3. MULTIVITAMIN [Concomitant]
  4. ACCUFLORA DIGESTIVE SUPPLEMENT [Concomitant]

REACTIONS (1)
  - Nephrectomy [Recovered/Resolved]
